FAERS Safety Report 16127139 (Version 1)
Quarter: 2019Q1

REPORT INFORMATION
  Report Type: Report from Study
  Country: SG (occurrence: SG)
  Receive Date: 20190328
  Receipt Date: 20190328
  Transmission Date: 20190418
  Serious: Yes (Other)
  Sender: FDA-Public Use
  Company Number: SG-ROCHE-2161902

PATIENT

DRUGS (2)
  1. 5-FLUOROURACIL [Suspect]
     Active Substance: FLUOROURACIL
     Indication: RECTAL CANCER
     Route: 065
  2. CAPECITABINE. [Suspect]
     Active Substance: CAPECITABINE
     Indication: RECTAL CANCER
     Route: 065

REACTIONS (9)
  - Vomiting [Unknown]
  - Ureteric stenosis [Unknown]
  - Haematotoxicity [Unknown]
  - Female genital tract fistula [Unknown]
  - Diarrhoea [Unknown]
  - Nausea [Unknown]
  - Anastomotic fistula [Unknown]
  - Dermatitis [Unknown]
  - Cystitis [Unknown]
